FAERS Safety Report 18402389 (Version 2)
Quarter: 2020Q4

REPORT INFORMATION
  Report Type: Spontaneous
  Country: US (occurrence: US)
  Receive Date: 20201019
  Receipt Date: 20201104
  Transmission Date: 20210114
  Serious: No
  Sender: FDA-Public Use
  Company Number: US-PFIZER INC-2020380935

PATIENT
  Age: 56 Year
  Sex: Male
  Weight: 74.39 kg

DRUGS (1)
  1. NIVESTYM [Suspect]
     Active Substance: FILGRASTIM-AAFI
     Dosage: UNK

REACTIONS (3)
  - Haemoglobin increased [Unknown]
  - White blood cell count increased [Unknown]
  - Neutrophil count increased [Unknown]
